FAERS Safety Report 17296613 (Version 2)
Quarter: 2020Q2

REPORT INFORMATION
  Report Type: Report from Study
  Country: JP (occurrence: JP)
  Receive Date: 20200122
  Receipt Date: 20200611
  Transmission Date: 20200713
  Serious: Yes (Other)
  Sender: FDA-Public Use
  Company Number: JP-CELLTRION INC.-2020JP017859

PATIENT

DRUGS (18)
  1. TRASTUZUMAB BS FOR I.V. INFUSION [NK] [Suspect]
     Active Substance: TRASTUZUMAB
     Dosage: 300 MILLIGRAM, QD
     Route: 041
     Dates: start: 20190819, end: 20190819
  2. OXALIPLATIN. [Suspect]
     Active Substance: OXALIPLATIN
     Indication: HER2 POSITIVE GASTRIC CANCER
     Dosage: 150 MILLIGRAM, QD
     Route: 065
     Dates: start: 20190617
  3. OXALIPLATIN. [Suspect]
     Active Substance: OXALIPLATIN
     Dosage: 150 MILLIGRAM, QD
     Route: 065
     Dates: start: 20190709
  4. EMEND [Concomitant]
     Active Substance: APREPITANT
     Indication: PROPHYLAXIS OF NAUSEA AND VOMITING
     Dosage: UNK
     Dates: start: 20190617, end: 20191206
  5. TRASTUZUMAB BS FOR I.V. INFUSION [NK] [Suspect]
     Active Substance: TRASTUZUMAB
     Dosage: 300 MILLIGRAM, QD
     Route: 041
     Dates: start: 20190909, end: 20190909
  6. OXALIPLATIN. [Suspect]
     Active Substance: OXALIPLATIN
     Dosage: 150 MILLIGRAM, QD
     Route: 065
     Dates: start: 20190729
  7. OXALIPLATIN. [Suspect]
     Active Substance: OXALIPLATIN
     Dosage: 150 MILLIGRAM, QD
     Route: 065
     Dates: start: 20190819
  8. OXALIPLATIN. [Suspect]
     Active Substance: OXALIPLATIN
     Dosage: 120 MILLIGRAM, QD
     Route: 065
     Dates: start: 20190909
  9. S-1TAIHO [Suspect]
     Active Substance: GIMERACIL\OTERACIL\TEGAFUR
     Dosage: 80 MILLIGRAM, QD
     Route: 065
     Dates: start: 20190709, end: 20190722
  10. S-1TAIHO [Suspect]
     Active Substance: GIMERACIL\OTERACIL\TEGAFUR
     Dosage: 80 MILLIGRAM, QD
     Route: 065
     Dates: start: 20190729, end: 20190811
  11. S-1TAIHO [Suspect]
     Active Substance: GIMERACIL\OTERACIL\TEGAFUR
     Dosage: 40 MILLIGRAM, QD
     Route: 065
     Dates: start: 20190909, end: 20190922
  12. TRASTUZUMAB BS FOR I.V. INFUSION [NK] [Suspect]
     Active Substance: TRASTUZUMAB
     Indication: HER2 POSITIVE GASTRIC CANCER
     Dosage: 450 MILLIGRAM, QD
     Route: 041
     Dates: start: 20190607, end: 20190607
  13. TRASTUZUMAB BS FOR I.V. INFUSION [NK] [Suspect]
     Active Substance: TRASTUZUMAB
     Dosage: 300 MILLIGRAM, QD
     Route: 041
     Dates: start: 20190709, end: 20190709
  14. S-1TAIHO [Suspect]
     Active Substance: GIMERACIL\OTERACIL\TEGAFUR
     Indication: HER2 POSITIVE GASTRIC CANCER
     Dosage: 80 MILLIGRAM, QD
     Route: 065
     Dates: start: 20190617, end: 20190630
  15. ALOXI [Concomitant]
     Active Substance: PALONOSETRON HYDROCHLORIDE
     Dosage: UNK
     Dates: start: 20190617, end: 20191202
  16. DEXART [Concomitant]
     Active Substance: DEXAMETHASONE SODIUM PHOSPHATE
     Dosage: UNK
     Dates: start: 20190617, end: 20191202
  17. TRASTUZUMAB BS FOR I.V. INFUSION [NK] [Suspect]
     Active Substance: TRASTUZUMAB
     Dosage: 300 MILLIGRAM, QD
     Route: 041
     Dates: start: 20190729, end: 20190729
  18. S-1TAIHO [Suspect]
     Active Substance: GIMERACIL\OTERACIL\TEGAFUR
     Dosage: 40 MILLIGRAM, QD
     Route: 065
     Dates: start: 20190819, end: 20190901

REACTIONS (5)
  - Neuropathy peripheral [Recovering/Resolving]
  - Underdose [Unknown]
  - Product use issue [Unknown]
  - Diarrhoea [Recovering/Resolving]
  - White blood cell count decreased [Recovered/Resolved]

NARRATIVE: CASE EVENT DATE: 20190709
